FAERS Safety Report 5199221-2 (Version None)
Quarter: 2006Q4

REPORT INFORMATION
  Report Type: 
  Country: None (occurrence: None)
  Receive Date: 20061016
  Receipt Date: 20060621
  Transmission Date: 20070319
  Serious: No
  Sender: FDA-Public Use
  Company Number: 2006SP002500

PATIENT
  Age: 81 Year
  Sex: Female
  Weight: 80.7403 kg

DRUGS (7)
  1. LUNESTA [Suspect]
     Indication: INSOMNIA
     Dosage: 2 MG;1X;ORAL
     Route: 048
     Dates: start: 20060516, end: 20060516
  2. LUNESTA [Suspect]
     Indication: INSOMNIA
     Dosage: 2 MG;1X;ORAL
     Route: 048
     Dates: start: 20060519, end: 20060519
  3. WATER PILLS [Concomitant]
  4. PREVACID [Concomitant]
  5. COZAAR [Concomitant]
  6. TOPROL-XL [Concomitant]
  7. AMBIEN [Concomitant]

REACTIONS (2)
  - DIZZINESS [None]
  - SOMNOLENCE [None]
